FAERS Safety Report 7271517-X (Version None)
Quarter: 2011Q1

REPORT INFORMATION
  Report Type: 
  Country: None (occurrence: None)
  Receive Date: 20110128
  Receipt Date: 20110128
  Transmission Date: 20110831
  Serious: No
  Sender: FDA-Public Use
  Company Number: None

PATIENT
  Age: 58 Year
  Sex: Female
  Weight: 72.5755 kg

DRUGS (1)
  1. ALCOHOL SWABSTICKS TRIAD [Suspect]
     Indication: THERAPEUTIC SKIN CARE TOPICAL
     Dosage: 3 SWABS TWICE WEEK TOP
     Route: 061
     Dates: start: 20101001

REACTIONS (3)
  - INFUSION SITE PAIN [None]
  - INFUSION SITE ERYTHEMA [None]
  - INFUSION SITE INFLAMMATION [None]
